FAERS Safety Report 25452922 (Version 3)
Quarter: 2025Q4

REPORT INFORMATION
  Report Type: Spontaneous
  Country: JP (occurrence: JP)
  Receive Date: 20250618
  Receipt Date: 20251031
  Transmission Date: 20260117
  Serious: Yes (Death, Hospitalization, Other)
  Sender: ASTELLAS
  Company Number: JP-ASTELLAS-2025-AER-013962

PATIENT
  Age: 86 Year
  Sex: Male

DRUGS (3)
  1. PADCEV [Suspect]
     Active Substance: ENFORTUMAB VEDOTIN-EJFV
     Indication: Metastatic carcinoma of the bladder
     Dosage: ADMINISTRATION FOR 2 WEEKS AND INTERRUPTION ON 3RD WEEK
     Route: 065
     Dates: start: 20250121
  2. PADCEV [Suspect]
     Active Substance: ENFORTUMAB VEDOTIN-EJFV
     Dosage: ONE-STEP DOSE REDUCTION, 80% DOSE?ADMINISTRATION FOR 2 WEEKS AND INTERRUPTION ON 3RD WEEK
     Route: 065
     Dates: end: 20250328
  3. PEMBROLIZUMAB [Concomitant]
     Active Substance: PEMBROLIZUMAB
     Indication: Product used for unknown indication
     Route: 065
     Dates: start: 20250121

REACTIONS (5)
  - Aortic dissection [Fatal]
  - Aortic aneurysm rupture [Fatal]
  - Blister [Recovering/Resolving]
  - Taste disorder [Unknown]
  - Cutaneous symptom [Unknown]

NARRATIVE: CASE EVENT DATE: 20250307
